FAERS Safety Report 9046514 (Version 1)
Quarter: 2013Q1

REPORT INFORMATION
  Report Type: Spontaneous
  Country: US (occurrence: None)
  Receive Date: 20130128
  Receipt Date: 20130128
  Transmission Date: 20140127
  Serious: No
  Sender: FDA-Public Use
  Company Number: None

PATIENT
  Sex: Female
  Weight: 85.73 kg

DRUGS (2)
  1. HEPARIN [Suspect]
     Indication: PULMONARY EMBOLISM
     Dates: start: 20130117, end: 20130119
  2. LOVENOX [Suspect]
     Indication: PULMONARY EMBOLISM
     Dates: start: 20130119, end: 20130119

REACTIONS (1)
  - Heparin-induced thrombocytopenia [None]
